FAERS Safety Report 5030944-1 (Version None)
Quarter: 2006Q2

REPORT INFORMATION
  Report Type: 
  Country: None (occurrence: None)
  Receive Date: 20060504
  Receipt Date: 20060209
  Transmission Date: 20061013
  Serious: No
  Sender: FDA-Public Use
  Company Number: 200610764BWH

PATIENT
  Sex: Male

DRUGS (11)
  1. LEVITRA [Suspect]
     Dosage: 20 MG, ONCE ORAL
     Route: 048
     Dates: start: 20060208
  2. LASIX [Concomitant]
  3. GABAPENTIN [Concomitant]
  4. MAG-OX [Concomitant]
  5. NIFEDIPINE [Concomitant]
  6. VYTORIN [Concomitant]
  7. FLOMAX [Concomitant]
  8. GLIPIZIDE [Concomitant]
  9. LISINOPRIL [Concomitant]
  10. SOD CITRATE [Concomitant]
  11. IRON [Concomitant]

REACTIONS (1)
  - ERECTILE DYSFUNCTION [None]
